FAERS Safety Report 23881833 (Version 2)
Quarter: 2024Q3

REPORT INFORMATION
  Report Type: Spontaneous
  Country: US (occurrence: US)
  Receive Date: 20240521
  Receipt Date: 20240802
  Transmission Date: 20241016
  Serious: Yes (Other)
  Sender: PFIZER
  Company Number: US-PFIZER INC-202400131471

PATIENT
  Age: 50 Year
  Sex: Female
  Weight: 132 kg

DRUGS (2)
  1. ZARONTIN [Suspect]
     Active Substance: ETHOSUXIMIDE
     Indication: Epilepsy
     Dosage: 250MG CAPSULES, BY MOUTH, ONE CAPSULE 4 TIMES A DAY
     Route: 048
     Dates: start: 20230117
  2. ZARONTIN [Suspect]
     Active Substance: ETHOSUXIMIDE
     Indication: Seizure

REACTIONS (3)
  - Product leakage [Not Recovered/Not Resolved]
  - Poor quality product administered [Not Recovered/Not Resolved]
  - Seizure [Not Recovered/Not Resolved]

NARRATIVE: CASE EVENT DATE: 20240101
